FAERS Safety Report 17027195 (Version 1)
Quarter: 2019Q4

REPORT INFORMATION
  Report Type: Spontaneous
  Country: US (occurrence: US)
  Receive Date: 20191113
  Receipt Date: 20191113
  Transmission Date: 20200122
  Serious: Yes (Other)
  Sender: FDA-Public Use
  Company Number: US-BIOGEN-2019BI00779260

PATIENT
  Sex: Female

DRUGS (1)
  1. TECFIDERA [Suspect]
     Active Substance: DIMETHYL FUMARATE
     Indication: MULTIPLE SCLEROSIS
     Route: 065

REACTIONS (9)
  - Acoustic neuroma [Unknown]
  - Nausea [Unknown]
  - Asthenia [Unknown]
  - Burning sensation [Unknown]
  - Mycobacterium tuberculosis complex test positive [Unknown]
  - Dizziness [Unknown]
  - Chills [Unknown]
  - Insomnia [Unknown]
  - Dyspnoea [Unknown]
